FAERS Safety Report 5117312-9 (Version None)
Quarter: 2006Q3

REPORT INFORMATION
  Report Type: 
  Country: None (occurrence: None)
  Receive Date: 20060926
  Receipt Date: 20060911
  Transmission Date: 20061208
  Serious: Yes (Hospitalization)
  Sender: FDA-Public Use
  Company Number: 2006S1005909

PATIENT
  Age: 56 Year
  Sex: Male
  Weight: 79.8331 kg

DRUGS (16)
  1. OXALIPLATIN [Suspect]
     Indication: PANCREATIC NEOPLASM
     Dosage: 170 MG;Q2W;IV
     Route: 042
     Dates: start: 20060502, end: 20060530
  2. BEVACIZUMAB [Suspect]
     Indication: PANCREATIC NEOPLASM
     Dosage: 400 MG;Q2W; IV
     Route: 042
     Dates: start: 20060502, end: 20060530
  3. FLUOROURACIL [Suspect]
     Indication: PANCREATIC NEOPLASM
     Dosage: SEE IMAGE
     Route: 042
     Dates: start: 20060502, end: 20060530
  4. FLUOROURACIL [Suspect]
     Indication: PANCREATIC NEOPLASM
     Dosage: SEE IMAGE
     Route: 042
     Dates: start: 20060502, end: 20060530
  5. LEUCOVORIN CALCIUM [Suspect]
     Indication: PANCREATIC NEOPLASM
     Dosage: 400 MG;Q2W;IV
     Route: 042
     Dates: start: 20060502, end: 20060530
  6. DEXAMETHASONE TAB [Suspect]
     Indication: PANCREATIC NEOPLASM
     Dosage: 20 MG;Q2W;IV
     Route: 042
     Dates: start: 20060530, end: 20060530
  7. LORAZEPAM [Suspect]
     Indication: PANCREATIC NEOPLASM
     Dosage: 1 MG;Q2W;PO
     Route: 048
     Dates: start: 20060530, end: 20060530
  8. GRANISETRON [Suspect]
     Indication: PANCREATIC NEOPLASM
     Dosage: 800 UG;Q2W;IV
     Route: 042
     Dates: start: 20060530, end: 20060530
  9. ACETAMINOFEN [Concomitant]
  10. LOPERAMIDE HCL [Concomitant]
  11. ACETAMINOPHEN AND HYDROCODONE BITARTRATE [Concomitant]
  12. LISINOPRIL [Concomitant]
  13. AMLODIPINE [Concomitant]
  14. FEXOFENADINE [Concomitant]
  15. OMEPRAZOLE [Concomitant]
  16. ASPIRIN [Concomitant]

REACTIONS (3)
  - ENTERITIS [None]
  - FEBRILE NEUTROPENIA [None]
  - SMALL INTESTINAL OBSTRUCTION [None]
